FAERS Safety Report 5079698-3 (Version None)
Quarter: 2006Q3

REPORT INFORMATION
  Report Type: 
  Country: None (occurrence: None)
  Receive Date: 20060814
  Receipt Date: 20060804
  Transmission Date: 20061208
  Serious: Yes (Hospitalization)
  Sender: FDA-Public Use
  Company Number: DE-MERCK-0608DEU00082

PATIENT
  Age: 30 Year
  Sex: Female
  Weight: 112 kg

DRUGS (8)
  1. SINGULAIR [Suspect]
     Indication: ASTHMA
     Route: 048
  2. SALMETEROL [Concomitant]
     Route: 055
  3. FLUTICASONE PROPIONATE [Concomitant]
     Route: 055
  4. THEOPHYLLINE [Concomitant]
     Route: 065
  5. TERBUTALINE SULFATE [Concomitant]
     Route: 065
  6. FENOTEROL [Concomitant]
     Route: 055
  7. INTERFERON ALFACON-1 [Suspect]
     Route: 058
     Dates: start: 20000501
  8. PREDNISOLONE [Concomitant]
     Route: 048

REACTIONS (5)
  - DIZZINESS [None]
  - DRUG INEFFECTIVE [None]
  - HEADACHE [None]
  - LETHARGY [None]
  - PYREXIA [None]
